FAERS Safety Report 8820709 (Version 1)
Quarter: 2012Q4

REPORT INFORMATION
  Report Type: 
  Country: BR (occurrence: BR)
  Receive Date: 20121002
  Receipt Date: 20121002
  Transmission Date: 20130627
  Serious: Yes (Hospitalization, Other)
  Sender: FDA-Public Use
  Company Number: PHHY2012BR085300

PATIENT
  Sex: Male

DRUGS (2)
  1. DIOVAN HCT [Suspect]
     Indication: HYPERTENSION
     Dosage: 2 DF, daily
     Route: 048
  2. ENALAPRIL [Suspect]
     Dosage: 2 DF, daily (30 mg in the morning and 30 mg at night)

REACTIONS (7)
  - Spinal disorder [Unknown]
  - Sensory loss [Not Recovered/Not Resolved]
  - Pain [Unknown]
  - Abasia [Recovering/Resolving]
  - Blood pressure increased [Not Recovered/Not Resolved]
  - Bone disorder [Not Recovered/Not Resolved]
  - Nervousness [Unknown]
